FAERS Safety Report 9487240 (Version 1)
Quarter: 2013Q3

REPORT INFORMATION
  Report Type: Spontaneous
  Country: US (occurrence: US)
  Receive Date: 20130829
  Receipt Date: 20130829
  Transmission Date: 20140515
  Serious: Yes (Hospitalization, Other)
  Sender: FDA-Public Use
  Company Number: US-AMGEN-KDL150005

PATIENT
  Age: 37 Year
  Sex: Female

DRUGS (2)
  1. ENBREL [Suspect]
     Indication: RHEUMATOID ARTHRITIS
     Dosage: 50 MG, QWK
     Route: 058
     Dates: start: 19981201
  2. METHOTREXATE [Concomitant]
     Dosage: 7.5 MG, QWK
     Dates: start: 19900101

REACTIONS (6)
  - Arthropathy [Recovered/Resolved]
  - Staphylococcal infection [Unknown]
  - Osteomyelitis [Unknown]
  - Cyst [Recovered/Resolved]
  - Graft complication [Recovered/Resolved]
  - Medical device complication [Recovered/Resolved]
